FAERS Safety Report 9046983 (Version 1)
Quarter: 2013Q1

REPORT INFORMATION
  Report Type: Spontaneous
  Country: US (occurrence: None)
  Receive Date: 20130129
  Receipt Date: 20130129
  Transmission Date: 20140127
  Serious: Yes (Congenital Anomaly)
  Sender: FDA-Public Use
  Company Number: None

PATIENT
  Age: 26 Year
  Sex: Female
  Weight: 68.04 kg

DRUGS (1)
  1. MIRENA BAYER [Suspect]

REACTIONS (5)
  - Discomfort [None]
  - Malaise [None]
  - Female sexual dysfunction [None]
  - Pregnancy [None]
  - Maternal exposure before pregnancy [None]
